FAERS Safety Report 4372692-7 (Version None)
Quarter: 2004Q2

REPORT INFORMATION
  Report Type: 
  Country: None (occurrence: None)
  Receive Date: 20040526
  Receipt Date: 20040514
  Transmission Date: 20050107
  Serious: Yes (Other)
  Sender: FDA-Public Use
  Company Number: SUS1-2004-00297

PATIENT
  Age: 19 Year
  Sex: Male

DRUGS (1)
  1. ADDERALL (AMPHETAMINE ASPARTATE, AMPHETAMINE SULFATE, DEXTROAMPHETAMIN [Suspect]
     Indication: ATTENTION DEFICIT/HYPERACTIVITY DISORDER
     Dosage: UNK, UNK, UNK
     Route: 065

REACTIONS (1)
  - GRAND MAL CONVULSION [None]
